FAERS Safety Report 9222241 (Version 1)
Quarter: 2013Q2

REPORT INFORMATION
  Report Type: Spontaneous
  Country: US (occurrence: US)
  Receive Date: 20130410
  Receipt Date: 20130410
  Transmission Date: 20140414
  Serious: Yes (Hospitalization, Other)
  Sender: FDA-Public Use
  Company Number: US-PFIZER INC-2013112769

PATIENT
  Age: 83 Year
  Sex: Female
  Weight: 58.5 kg

DRUGS (2)
  1. XANAX [Suspect]
     Indication: PANIC ATTACK
     Dosage: UNK
  2. ALPRAZOLAM [Suspect]
     Indication: PANIC ATTACK
     Dosage: UNK

REACTIONS (4)
  - Cellulitis [Unknown]
  - Limb injury [Unknown]
  - Drug ineffective [Unknown]
  - Asthenia [Unknown]
